FAERS Safety Report 4485649-2 (Version None)
Quarter: 2004Q4

REPORT INFORMATION
  Report Type: 
  Country: None (occurrence: None)
  Receive Date: 20041026
  Receipt Date: 20041019
  Transmission Date: 20050328
  Serious: Yes (Life-Threatening, Hospitalization, Disabling)
  Sender: FDA-Public Use
  Company Number: US-MERCK-0410USA02973

PATIENT
  Age: 58 Year
  Sex: Male

DRUGS (7)
  1. VIOXX [Suspect]
     Indication: PAIN
     Route: 048
     Dates: start: 20001001, end: 20040901
  2. PRAVACHOL [Concomitant]
     Route: 065
  3. LOTREL [Concomitant]
     Route: 065
  4. PLAVIX [Concomitant]
     Route: 065
  5. FOLIC ACID [Concomitant]
     Route: 065
  6. GLIPIZIDE [Concomitant]
     Route: 065
  7. LEVOBUNOLOL HYDROCHLORIDE [Concomitant]
     Route: 065

REACTIONS (1)
  - CEREBROVASCULAR ACCIDENT [None]
